FAERS Safety Report 6266590-1 (Version None)
Quarter: 2009Q3

REPORT INFORMATION
  Report Type: 
  Country: None (occurrence: None)
  Receive Date: 20090710
  Receipt Date: 20090702
  Transmission Date: 20100115
  Serious: Yes (Disabling)
  Sender: FDA-Public Use
  Company Number: 316574

PATIENT
  Sex: Male

DRUGS (1)
  1. BUPIVACAINE [Suspect]
     Indication: ANALGESIA
     Dosage: 120 CC CONTINUOUS FOR UP TO 72 HOURS OR MORE INJECTION
     Dates: start: 20031113

REACTIONS (1)
  - CHONDROLYSIS [None]
